FAERS Safety Report 10035420 (Version 6)
Quarter: 2014Q3

REPORT INFORMATION
  Report Type: Report from Study
  Country: US (occurrence: US)
  Receive Date: 20140325
  Receipt Date: 20140715
  Transmission Date: 20150326
  Serious: Yes (Death, Hospitalization)
  Sender: FDA-Public Use
  Company Number: US-ACTELION-A-NJ2014-96427

PATIENT
  Age: 75 Year
  Sex: Male

DRUGS (2)
  1. LETAIRIS [Suspect]
     Active Substance: AMBRISENTAN
     Dosage: 5 MG, QD
     Route: 048
     Dates: start: 20130418, end: 20140326
  2. VENTAVIS [Suspect]
     Active Substance: ILOPROST
     Indication: PULMONARY ARTERIAL HYPERTENSION
     Dosage: 80 MCG, UNK
     Route: 055
     Dates: start: 20130917, end: 20140326

REACTIONS (5)
  - Disease progression [Fatal]
  - Intestinal obstruction [Fatal]
  - Disorientation [Recovering/Resolving]
  - Hepatic cirrhosis [Fatal]
  - Ammonia increased [Recovering/Resolving]

NARRATIVE: CASE EVENT DATE: 20140312
